FAERS Safety Report 7708794-4 (Version None)
Quarter: 2011Q3

REPORT INFORMATION
  Report Type: 
  Country: None (occurrence: None)
  Receive Date: 20110825
  Receipt Date: 20110823
  Transmission Date: 20111222
  Serious: Yes (Other)
  Sender: FDA-Public Use
  Company Number: AU-SANOFI-AVENTIS-2011SA053531

PATIENT
  Sex: Female

DRUGS (3)
  1. ETANERCEPT [Concomitant]
  2. ARAVA [Suspect]
     Route: 065
  3. CITALOPRAM [Concomitant]

REACTIONS (1)
  - TUBULOINTERSTITIAL NEPHRITIS [None]
